FAERS Safety Report 7505583-0 (Version None)
Quarter: 2011Q2

REPORT INFORMATION
  Report Type: 
  Country: None (occurrence: None)
  Receive Date: 20110526
  Receipt Date: 20110523
  Transmission Date: 20111010
  Serious: Yes (Other)
  Sender: FDA-Public Use
  Company Number: US-PFIZER INC-2011094906

PATIENT
  Sex: Female
  Weight: 82.993 kg

DRUGS (13)
  1. SINGULAIR [Concomitant]
     Indication: HYPERSENSITIVITY
     Dosage: 10 MG, 1X/DAY
  2. VALIUM [Concomitant]
     Indication: ANXIETY
     Dosage: 5 MG, AS NEEDED
     Route: 048
  3. LEVOTHYROXINE [Concomitant]
     Indication: THYROID DISORDER
     Dosage: 75 UG, 1X/DAY
     Route: 048
  4. NORVASC [Concomitant]
     Indication: HYPERTENSION
     Dosage: 5 MG, 2X/DAY
     Route: 048
  5. WARFARIN SODIUM [Concomitant]
     Dosage: 10 MG, 1X/DAY
     Route: 048
  6. XANAX [Concomitant]
     Indication: ANXIETY
     Dosage: 0.25 MG, UNK
     Route: 048
  7. LIPITOR [Concomitant]
     Indication: BLOOD CHOLESTEROL ABNORMAL
     Dosage: 40 MG, 1X/DAY
     Route: 048
  8. FOSAMAX [Suspect]
     Indication: OSTEOPOROSIS
     Dosage: UNK
     Route: 048
  9. XYZAL [Concomitant]
     Indication: HYPERSENSITIVITY
     Dosage: 5 MG, 1X/DAY
     Route: 048
  10. SINGULAIR [Concomitant]
     Indication: LUNG DISORDER
  11. TIKOSYN [Suspect]
     Indication: ATRIAL FIBRILLATION
     Dosage: 500 UG, 2X/DAY
     Route: 048
     Dates: start: 20101001
  12. NEXIUM [Suspect]
     Indication: OESOPHAGEAL DISORDER
     Dosage: UNK
     Dates: end: 20110201
  13. MICARDIS [Concomitant]
     Dosage: 80 MG, 1X/DAY
     Route: 048

REACTIONS (4)
  - ATRIAL FIBRILLATION [None]
  - PALPITATIONS [None]
  - CATARACT [None]
  - GASTRIC DISORDER [None]
